FAERS Safety Report 24773793 (Version 1)
Quarter: 2024Q4

REPORT INFORMATION
  Report Type: Report from Study
  Country: US (occurrence: US)
  Receive Date: 20241225
  Receipt Date: 20241225
  Transmission Date: 20250115
  Serious: Yes (Other)
  Sender: JAZZ
  Company Number: US-JAZZ-2017-US-000012

PATIENT
  Sex: Female

DRUGS (11)
  1. XYREM [Suspect]
     Active Substance: SODIUM OXYBATE
     Indication: Narcolepsy
     Dosage: 2.25 G, BID
     Route: 048
     Dates: start: 200812, end: 200812
  2. XYREM [Suspect]
     Active Substance: SODIUM OXYBATE
     Indication: Cataplexy
     Dosage: 3 G, BID
     Route: 048
     Dates: start: 200812, end: 2011
  3. XYREM [Suspect]
     Active Substance: SODIUM OXYBATE
     Dosage: 4.5 G, BID
     Route: 048
     Dates: start: 201112
  4. WELLBUTRIN [Concomitant]
     Active Substance: BUPROPION HYDROCHLORIDE
  5. NASONEX [Concomitant]
     Active Substance: MOMETASONE FUROATE
  6. LISINOPRIL [Concomitant]
     Active Substance: LISINOPRIL
  7. VITAMIN B COMPLEX [NICOTINAMIDE] [Concomitant]
  8. CYMBALTA [Concomitant]
     Active Substance: DULOXETINE HYDROCHLORIDE
  9. FLAXSEED [Concomitant]
     Active Substance: FLAX SEED
  10. PREDNISONE [Concomitant]
     Active Substance: PREDNISONE
  11. PROVIGIL [Concomitant]
     Active Substance: MODAFINIL

REACTIONS (3)
  - Hypothyroidism [Unknown]
  - Blood pressure increased [Recovering/Resolving]
  - Weight decreased [Unknown]
